FAERS Safety Report 22299775 (Version 4)
Quarter: 2024Q3

REPORT INFORMATION
  Report Type: Report from Study
  Country: IN (occurrence: IN)
  Receive Date: 20230509
  Receipt Date: 20240720
  Transmission Date: 20241017
  Serious: Yes (Hospitalization)
  Sender: TAKEDA
  Company Number: IN-TAKEDA-2023TUS045228

PATIENT
  Sex: Male
  Weight: 67 kg

DRUGS (1)
  1. VEDOLIZUMAB [Suspect]
     Active Substance: VEDOLIZUMAB
     Indication: Crohn^s disease
     Dosage: 300 MILLIGRAM
     Route: 042

REACTIONS (6)
  - Bone pain [Unknown]
  - Abdominal pain upper [Unknown]
  - Swelling face [Unknown]
  - Malaise [Unknown]
  - Frequent bowel movements [Unknown]
  - Weight decreased [Unknown]
